FAERS Safety Report 5478293-1 (Version None)
Quarter: 2007Q4

REPORT INFORMATION
  Report Type: 
  Country: None (occurrence: None)
  Receive Date: 20071005
  Receipt Date: 20071001
  Transmission Date: 20080405
  Serious: Yes (Other)
  Sender: FDA-Public Use
  Company Number: US-ASTRAZENECA-2007UW21848

PATIENT
  Age: 3350 Day
  Sex: Male
  Weight: 27 kg

DRUGS (3)
  1. PULMICORT FLEXHALER [Suspect]
     Indication: ASTHMA
     Dosage: ONE PUFF
     Route: 055
     Dates: start: 20070915, end: 20070915
  2. ALBUTEROL [Concomitant]
  3. PULMICORT [Concomitant]
     Dosage: 2 PUFFS
     Route: 055

REACTIONS (3)
  - COUGH [None]
  - DYSPNOEA [None]
  - WHEEZING [None]
